FAERS Safety Report 6219085-5 (Version None)
Quarter: 2009Q2

REPORT INFORMATION
  Report Type: 
  Country: None (occurrence: None)
  Receive Date: 20090609
  Receipt Date: 20090608
  Transmission Date: 20091009
  Serious: Yes (Death, Other)
  Sender: FDA-Public Use
  Company Number: US-PFIZER INC-2009184952

PATIENT
  Sex: Male

DRUGS (4)
  1. ZYVOX [Suspect]
     Indication: EMPYEMA
     Dosage: 600 MG, 2X/DAY
     Route: 042
     Dates: start: 20090302, end: 20090310
  2. ZYVOX [Suspect]
     Indication: PNEUMONIA
  3. ZYVOX [Suspect]
     Indication: SEPSIS
  4. CELEXA [Concomitant]
     Dosage: UNK
     Dates: end: 20090101

REACTIONS (6)
  - AUTONOMIC NERVOUS SYSTEM IMBALANCE [None]
  - CLONUS [None]
  - GENERAL PHYSICAL HEALTH DETERIORATION [None]
  - HYPERTHERMIA [None]
  - MUSCLE RIGIDITY [None]
  - SEROTONIN SYNDROME [None]
